FAERS Safety Report 14151872 (Version 1)
Quarter: 2017Q4

REPORT INFORMATION
  Report Type: Spontaneous
  Country: US (occurrence: US)
  Receive Date: 20171101
  Receipt Date: 20171101
  Transmission Date: 20180321
  Serious: Yes (Disabling)
  Sender: FDA-Public Use
  Company Number: None

PATIENT
  Age: 44 Year
  Sex: Female
  Weight: 63 kg

DRUGS (5)
  1. BABY ASPIRIN [Concomitant]
     Active Substance: ASPIRIN
  2. LIQUID VITAMIN B [Concomitant]
  3. SCOPOLAMINE [Suspect]
     Active Substance: SCOPOLAMINE
     Indication: PROPHYLAXIS AGAINST MOTION SICKNESS
     Dosage: OTHER FREQUENCY:EVERY 3 DAYS;?
     Route: 062
  4. FLEXERIL [Concomitant]
     Active Substance: CYCLOBENZAPRINE HYDROCHLORIDE
  5. GUMMY VITAMINS [Concomitant]

REACTIONS (3)
  - Eye disorder [None]
  - Vision blurred [None]
  - Reading disorder [None]

NARRATIVE: CASE EVENT DATE: 20161112
